FAERS Safety Report 9339159 (Version 2)
Quarter: 2013Q2

REPORT INFORMATION
  Report Type: Spontaneous
  Country: FR (occurrence: FR)
  Receive Date: 20130610
  Receipt Date: 20130618
  Transmission Date: 20140414
  Serious: Yes (Other)
  Sender: FDA-Public Use
  Company Number: FR-PFIZER INC-2013168191

PATIENT
  Sex: 0

DRUGS (1)
  1. VFEND [Suspect]
     Indication: PROPHYLAXIS

REACTIONS (1)
  - Squamous cell carcinoma [Unknown]
